FAERS Safety Report 11888466 (Version 1)
Quarter: 2016Q1

REPORT INFORMATION
  Report Type: Other
  Country: DK (occurrence: DK)
  Receive Date: 20160105
  Receipt Date: 20160105
  Transmission Date: 20160526
  Serious: Yes (Other)
  Sender: FDA-Public Use
  Company Number: DK-MYLANLABS-2015M1046682

PATIENT

DRUGS (2)
  1. ABILIFY [Suspect]
     Active Substance: ARIPIPRAZOLE
     Indication: PRODUCT USED FOR UNKNOWN INDICATION
     Dosage: 1 DF, UNK (SUSPENSION,1DF:1MG/ML.   2 MG/ML FROM 25/07/12)
     Route: 048
     Dates: start: 20120718
  2. SERTRALINE [Suspect]
     Active Substance: SERTRALINE HYDROCHLORIDE
     Indication: PRODUCT USED FOR UNKNOWN INDICATION
     Dosage: 150 MG, UNK (150 MG ABOUT 8 WEEKS,MORE THAN 100MG SINCE ABOUT 1ST JUNE)
     Route: 065

REACTIONS (6)
  - Malaise [Unknown]
  - Orthostatic hypotension [Unknown]
  - Dizziness [Recovered/Resolved]
  - Anxiety [Unknown]
  - Off label use [Unknown]
  - Balance disorder [Unknown]

NARRATIVE: CASE EVENT DATE: 20120721
